FAERS Safety Report 10177193 (Version 1)
Quarter: 2014Q2

REPORT INFORMATION
  Report Type: Spontaneous
  Country: US (occurrence: US)
  Receive Date: 20140516
  Receipt Date: 20140516
  Transmission Date: 20141212
  Serious: Yes (Other)
  Sender: FDA-Public Use
  Company Number: US-UCBSA-120604

PATIENT
  Sex: Female

DRUGS (1)
  1. KEPPRA XR [Suspect]
     Dosage: 750 MG/2TIMES

REACTIONS (1)
  - Encephalitis [Not Recovered/Not Resolved]
